FAERS Safety Report 6260743-4 (Version None)
Quarter: 2009Q3

REPORT INFORMATION
  Report Type: 
  Country: None (occurrence: None)
  Receive Date: 20090708
  Receipt Date: 20090702
  Transmission Date: 20100115
  Serious: Yes (Other)
  Sender: FDA-Public Use
  Company Number: JP-MERCK-0906USA02202

PATIENT
  Age: 42 Year
  Sex: Male

DRUGS (5)
  1. PROPECIA [Suspect]
     Indication: ANDROGENETIC ALOPECIA
     Route: 048
     Dates: start: 20090329, end: 20090531
  2. RESLIN [Suspect]
     Indication: DEPRESSION
     Route: 048
  3. LUVOX [Suspect]
     Indication: DEPRESSION
     Route: 048
  4. LORAMET [Suspect]
     Indication: DEPRESSION
     Route: 048
  5. MUCOSTA [Suspect]
     Indication: GASTRIC DISORDER
     Route: 048

REACTIONS (1)
  - HEPATIC FUNCTION ABNORMAL [None]
